FAERS Safety Report 6053318-3 (Version None)
Quarter: 2009Q1

REPORT INFORMATION
  Report Type: 
  Country: None (occurrence: None)
  Receive Date: 20090127
  Receipt Date: 20090122
  Transmission Date: 20090719
  Serious: Yes (Death, Hospitalization)
  Sender: FDA-Public Use
  Company Number: A0765154A

PATIENT
  Age: 76 Year
  Sex: Male

DRUGS (5)
  1. SERETIDE [Suspect]
     Indication: CHRONIC OBSTRUCTIVE PULMONARY DISEASE
     Dosage: 1PUFF TWICE PER DAY
     Route: 055
     Dates: start: 20080921, end: 20081221
  2. FUROSEMIDE [Concomitant]
  3. CARVEDILOL [Concomitant]
  4. DIOVAN [Concomitant]
  5. ASPIRIN [Concomitant]

REACTIONS (3)
  - PROCEDURAL COMPLICATION [None]
  - SHOCK HAEMORRHAGIC [None]
  - SURGERY [None]
